FAERS Safety Report 5661627-2 (Version None)
Quarter: 2008Q1

REPORT INFORMATION
  Report Type: 
  Country: None (occurrence: None)
  Receive Date: 20080312
  Receipt Date: 20080306
  Transmission Date: 20080703
  Serious: Yes (Disabling)
  Sender: FDA-Public Use
  Company Number: BR-AVENTIS-200812158GDDC

PATIENT
  Age: 76 Year
  Sex: Male
  Weight: 78 kg

DRUGS (14)
  1. LANTUS [Suspect]
     Dosage: DOSE: VARIABLE DOSE REGIMEN (52 IU VARIABLE ACCORDING TO GLYCEMIA
     Route: 058
     Dates: start: 20080225
  2. HUMALOG [Suspect]
     Dosage: DOSE: 14-16 IU ACCORDING TO GLYCEMIA
     Route: 058
     Dates: start: 20080225
  3. PLAVIX [Concomitant]
     Dosage: DOSE QUANTITY: 1
     Route: 048
     Dates: start: 20060101
  4. ANCORON [Concomitant]
     Dosage: DOSE QUANTITY: 1
     Route: 048
     Dates: start: 20060101
  5. ALLOPURINOL [Concomitant]
     Dosage: DOSE QUANTITY: 1
     Route: 048
     Dates: start: 20060101
  6. PROSCAR [Concomitant]
     Dosage: DOSE QUANTITY: 1
     Route: 048
     Dates: start: 20060101
  7. DIGOXIN [Concomitant]
     Dosage: DOSE QUANTITY: 2
     Route: 048
     Dates: start: 20060101
  8. LIPITOR [Concomitant]
     Dosage: DOSE QUANTITY: 1
     Route: 048
     Dates: start: 20060101
  9. SERETIDE [Concomitant]
     Dosage: DOSE: 25/125 MG ~ 2 DOSES
     Route: 055
     Dates: start: 20060101
  10. SPIRIVA [Concomitant]
     Dosage: DOSE: 1 DOSE
     Route: 055
     Dates: start: 20060101
  11. METAMUCIL                          /00091301/ [Concomitant]
     Indication: CONSTIPATION
     Dosage: DOSE: 1 SACHET
     Route: 048
     Dates: start: 20060101
  12. TAZOCIN [Concomitant]
     Dosage: DOSE: ONE VIAL Q6H/Q8H
     Route: 042
     Dates: start: 20080221, end: 20080304
  13. ZYVOX [Concomitant]
     Route: 042
     Dates: start: 20080221, end: 20080304
  14. OMEPRAZOLE [Concomitant]
     Dosage: DOSE QUANTITY: 1
     Route: 048
     Dates: start: 20070101

REACTIONS (2)
  - OFF LABEL USE [None]
  - SOMNOLENCE [None]
